FAERS Safety Report 17496390 (Version 1)
Quarter: 2020Q1

REPORT INFORMATION
  Report Type: Spontaneous
  Country: US (occurrence: US)
  Receive Date: 20200304
  Receipt Date: 20200304
  Transmission Date: 20200409
  Serious: No
  Sender: FDA-Public Use
  Company Number: US-VERTEX PHARMACEUTICALS-2020-004066

PATIENT
  Sex: Male
  Weight: 16 kg

DRUGS (1)
  1. ORKAMBI [Suspect]
     Active Substance: IVACAFTOR\LUMACAFTOR
     Indication: CYSTIC FIBROSIS
     Dosage: (150MG LUMACAFTOR AND 188MG IVACAFTOR) 1 PACKET , EVERY 12 HOURS
     Route: 048

REACTIONS (1)
  - Bronchiolitis [Unknown]
